FAERS Safety Report 24682437 (Version 1)
Quarter: 2024Q4

REPORT INFORMATION
  Report Type: Spontaneous
  Country: LT (occurrence: LT)
  Receive Date: 20241130
  Receipt Date: 20241130
  Transmission Date: 20250114
  Serious: Yes (Other)
  Sender: ALEXION PHARMACEUTICALS
  Company Number: LT-ELI_LILLY_AND_COMPANY-LT202411008694

PATIENT

DRUGS (10)
  1. FASLODEX [Suspect]
     Active Substance: FULVESTRANT
     Indication: Hormone receptor positive HER2 negative breast cancer
     Dosage: UNK UNK, UNKNOWN
     Route: 065
  2. FASLODEX [Suspect]
     Active Substance: FULVESTRANT
     Dosage: UNK UNK, UNKNOWN
  3. FASLODEX [Suspect]
     Active Substance: FULVESTRANT
     Dosage: UNK UNK, UNKNOWN
     Route: 065
  4. FASLODEX [Suspect]
     Active Substance: FULVESTRANT
     Dosage: UNK UNK, UNKNOWN
  5. ABEMACICLIB [Suspect]
     Active Substance: ABEMACICLIB
     Indication: Hormone receptor positive HER2 negative breast cancer
     Dosage: 150 MG, BID
  6. ABEMACICLIB [Suspect]
     Active Substance: ABEMACICLIB
     Dosage: 150 MG, BID
     Route: 065
  7. RIBOCICLIB [Suspect]
     Active Substance: RIBOCICLIB
     Indication: Product used for unknown indication
     Dosage: UNK UNK, UNKNOWN
  8. RIBOCICLIB [Suspect]
     Active Substance: RIBOCICLIB
     Dosage: UNK UNK, UNKNOWN
     Route: 065
  9. LETROZOLE [Suspect]
     Active Substance: LETROZOLE
     Indication: Product used for unknown indication
     Dosage: UNK UNK, UNKNOWN
  10. LETROZOLE [Suspect]
     Active Substance: LETROZOLE
     Dosage: UNK UNK, UNKNOWN
     Route: 065

REACTIONS (6)
  - Ischaemic cerebral infarction [Unknown]
  - Lip swelling [Unknown]
  - Dysphonia [Unknown]
  - Dyspnoea [Unknown]
  - Asthenia [Unknown]
  - Dizziness [Unknown]
